FAERS Safety Report 9746332 (Version 3)
Quarter: 2014Q1

REPORT INFORMATION
  Report Type: Spontaneous
  Country: GR (occurrence: None)
  Receive Date: 20131205
  Receipt Date: 20140305
  Transmission Date: 20141002
  Serious: Yes (Hospitalization)
  Sender: FDA-Public Use
  Company Number: VAL_02845_2013

PATIENT
  Age: 59 Year
  Sex: Female

DRUGS (6)
  1. METOPROLOL (METOPROLOL - METOPROLOL TARTRATE) [Suspect]
     Indication: HYPERTENSION
  2. VALSARTAN (VALSARTAN (VALSARTAN)) [Suspect]
     Indication: HYPERTENSION
  3. FUROSEMIDE [Suspect]
     Indication: HYPERTENSION
  4. CLONIDINE HCL [Suspect]
     Indication: HYPERTENSION
  5. PHENYTION [Concomitant]
  6. DARBEPOETIN ALFA [Concomitant]

REACTIONS (2)
  - Posterior reversible encephalopathy syndrome [None]
  - Haemodialysis [None]
